FAERS Safety Report 25937119 (Version 2)
Quarter: 2025Q4

REPORT INFORMATION
  Report Type: Spontaneous
  Country: EU (occurrence: EU)
  Receive Date: 20251017
  Receipt Date: 20251125
  Transmission Date: 20260118
  Serious: Yes (Hospitalization)
  Sender: BOEHRINGER INGELHEIM
  Company Number: EU-Komodo Health-a23aa00000At4JlAAJ

PATIENT
  Sex: Male
  Weight: 107.6 kg

DRUGS (2)
  1. PRADAXA [Suspect]
     Active Substance: DABIGATRAN ETEXILATE MESYLATE
     Indication: Pulmonary embolism
     Dates: start: 2018
  2. PRADAXA [Suspect]
     Active Substance: DABIGATRAN ETEXILATE MESYLATE
     Dates: start: 2016, end: 2017

REACTIONS (4)
  - Perforation bile duct [Recovered/Resolved]
  - Hyperhidrosis [Not Recovered/Not Resolved]
  - Extrasystoles [Not Recovered/Not Resolved]
  - Nerve injury [Not Recovered/Not Resolved]
